FAERS Safety Report 10146741 (Version 1)
Quarter: 2014Q2

REPORT INFORMATION
  Report Type: Spontaneous
  Country: US (occurrence: None)
  Receive Date: 20140430
  Receipt Date: 20140430
  Transmission Date: 20141212
  Serious: Yes (Hospitalization)
  Sender: FDA-Public Use
  Company Number: None

PATIENT
  Age: 54 Year
  Sex: Male

DRUGS (16)
  1. PHENYTOIN [Suspect]
     Indication: CONVULSION PROPHYLAXIS
     Route: 048
     Dates: start: 20130802, end: 20130802
  2. ARTIFICIAL TEARS [Suspect]
  3. ASA [Concomitant]
  4. BACLOFEN [Concomitant]
  5. BISACODYL [Concomitant]
  6. CALCIUM + VITAMIN D [Concomitant]
  7. DOCUSATE [Concomitant]
  8. FERROUS SULFATE [Concomitant]
  9. FISH OIL [Concomitant]
  10. HYOSCYAMINE [Concomitant]
  11. MIDODRINE [Concomitant]
  12. MODAFINIL [Concomitant]
  13. OXYBUTYNIN [Concomitant]
  14. MULTIVITAMIN [Concomitant]
  15. DUONEB [Concomitant]
  16. MAGNESIUM GLUCONATE [Concomitant]

REACTIONS (7)
  - Depressed level of consciousness [None]
  - Blepharospasm [None]
  - Hallucination, visual [None]
  - Blood pressure decreased [None]
  - Heart rate decreased [None]
  - Urinary tract infection [None]
  - Toxicity to various agents [None]
